FAERS Safety Report 13066433 (Version 1)
Quarter: 2016Q4

REPORT INFORMATION
  Report Type: Spontaneous
  Country: GB (occurrence: GB)
  Receive Date: 20161227
  Receipt Date: 20161227
  Transmission Date: 20170207
  Serious: Yes (Hospitalization, Other)
  Sender: FDA-Public Use
  Company Number: GB-FRESENIUS KABI-FK201610123

PATIENT
  Age: 77 Year
  Sex: Male

DRUGS (1)
  1. ETOPOSIDE (MANUFACTURER UNKNOWN) [Suspect]
     Active Substance: ETOPOSIDE
     Indication: CHEMOTHERAPY
     Route: 048

REACTIONS (4)
  - Nausea [Unknown]
  - Neutropenic sepsis [Unknown]
  - Vomiting [Unknown]
  - Drug dispensing error [Unknown]
